FAERS Safety Report 7417235-6 (Version None)
Quarter: 2011Q2

REPORT INFORMATION
  Report Type: 
  Country: None (occurrence: None)
  Receive Date: 20110415
  Receipt Date: 20110406
  Transmission Date: 20111010
  Serious: Yes (Other)
  Sender: FDA-Public Use
  Company Number: US-JNJFOC-20110403832

PATIENT
  Age: 71 Year
  Sex: Female
  Weight: 86.18 kg

DRUGS (5)
  1. UNKNOWN MEDICATION [Concomitant]
     Indication: RENAL DISORDER
     Route: 048
  2. UNKNOWN MEDICATION [Concomitant]
     Indication: AFFECTIVE DISORDER
     Route: 048
  3. UNKNOWN MEDICATION [Concomitant]
     Indication: HORMONE REPLACEMENT THERAPY
     Route: 048
  4. IMODIUM MULTI-SYMPTOM RELIEF [Suspect]
     Indication: CROHN'S DISEASE
     Dosage: 2 TIMES PER WEEK
     Route: 048
  5. IMODIUM MULTI-SYMPTOM RELIEF [Suspect]
     Indication: IRRITABLE BOWEL SYNDROME
     Dosage: 2 TIMES PER WEEK
     Route: 048

REACTIONS (4)
  - CHOKING [None]
  - OVERDOSE [None]
  - INAPPROPRIATE SCHEDULE OF DRUG ADMINISTRATION [None]
  - PRODUCT QUALITY ISSUE [None]
